FAERS Safety Report 10493664 (Version 4)
Quarter: 2015Q1

REPORT INFORMATION
  Report Type: Spontaneous
  Country: US (occurrence: US)
  Receive Date: 20141002
  Receipt Date: 20150319
  Transmission Date: 20150720
  Serious: Yes (Other)
  Sender: FDA-Public Use
  Company Number: US-GLAXOSMITHKLINE-A1086752A

PATIENT
  Age: 82 Year
  Sex: Male
  Weight: 68.2 kg

DRUGS (6)
  1. ADVAIR DISKUS [Suspect]
     Active Substance: FLUTICASONE PROPIONATE\SALMETEROL XINAFOATE
     Indication: ASTHMA
     Dosage: 250/50 MCG UNKNOWN DOSE TWICE DAILY REDUCED TO 100/50 MCG
     Route: 055
     Dates: start: 2011
  2. VERAPAMIL [Concomitant]
     Active Substance: VERAPAMIL HYDROCHLORIDE
     Indication: HYPERTENSION
  3. ALBUTEROL. [Suspect]
     Active Substance: ALBUTEROL
     Indication: ASTHMA
     Dosage: 2 PUFF(S), PRN
     Route: 055
     Dates: start: 1980
  4. ADVAIR DISKUS [Suspect]
     Active Substance: FLUTICASONE PROPIONATE\SALMETEROL XINAFOATE
     Dosage: 100/50 MCG, 1 PUFF(S), QD
     Route: 055
  5. VERAPAMIL [Concomitant]
     Active Substance: VERAPAMIL HYDROCHLORIDE
     Indication: ARRHYTHMIA
  6. ASPIRIN LOW DOSE [Concomitant]
     Active Substance: ASPIRIN

REACTIONS (15)
  - Drug administration error [Unknown]
  - Atrial fibrillation [Recovered/Resolved]
  - Adverse drug reaction [Recovering/Resolving]
  - Bronchospasm [Recovering/Resolving]
  - Dizziness postural [Recovered/Resolved]
  - Irritability [Recovered/Resolved]
  - Tension [Recovering/Resolving]
  - Logorrhoea [Recovered/Resolved]
  - Balance disorder [Recovered/Resolved]
  - Panic attack [Recovered/Resolved]
  - Euphoric mood [Recovering/Resolving]
  - Restlessness [Recovered/Resolved]
  - Agitation [Recovering/Resolving]
  - Anxiety [Recovered/Resolved]
  - Dizziness [Recovered/Resolved]

NARRATIVE: CASE EVENT DATE: 2012
